FAERS Safety Report 20773689 (Version 2)
Quarter: 2022Q2

REPORT INFORMATION
  Report Type: Spontaneous
  Country: US (occurrence: US)
  Receive Date: 20220502
  Receipt Date: 20220515
  Transmission Date: 20220720
  Serious: Yes (Other)
  Sender: FDA-Public Use
  Company Number: US-BEH-2022144109

PATIENT
  Age: 49 Year
  Sex: Female

DRUGS (3)
  1. HAEGARDA [Suspect]
     Active Substance: HUMAN C1-ESTERASE INHIBITOR
     Indication: Hereditary angioedema
     Dosage: 3000 INTERNATIONAL UNIT, BIW
     Route: 058
     Dates: start: 20201217
  2. HAEGARDA [Suspect]
     Active Substance: HUMAN C1-ESTERASE INHIBITOR
     Indication: Prophylaxis
  3. FIRAZYR [Concomitant]
     Active Substance: ICATIBANT ACETATE

REACTIONS (7)
  - Device issue [Not Recovered/Not Resolved]
  - Product preparation issue [Not Recovered/Not Resolved]
  - Hereditary angioedema [Recovered/Resolved]
  - Device issue [Recovered/Resolved]
  - Device defective [Recovered/Resolved]
  - Therapy interrupted [Unknown]
  - No adverse event [Unknown]

NARRATIVE: CASE EVENT DATE: 20220404
